FAERS Safety Report 6020227-5 (Version None)
Quarter: 2008Q4

REPORT INFORMATION
  Report Type: 
  Country: None (occurrence: None)
  Receive Date: 20081226
  Receipt Date: 20081216
  Transmission Date: 20090506
  Serious: Yes (Other)
  Sender: FDA-Public Use
  Company Number: PHHY2008FR32672

PATIENT
  Sex: Female

DRUGS (6)
  1. EXELON [Suspect]
     Indication: DEMENTIA
     Dosage: 4.6 MG/24 HOUR
     Route: 062
  2. KARDEGIC [Concomitant]
     Dosage: 75 MG DAILY
  3. LEVOTHYROX [Concomitant]
  4. ESCITALOPRAM [Concomitant]
  5. SOTALOL [Concomitant]
  6. ALPRAZOLAM [Concomitant]

REACTIONS (1)
  - ECZEMA [None]
